FAERS Safety Report 6134975-X (Version None)
Quarter: 2009Q1

REPORT INFORMATION
  Report Type: 
  Country: None (occurrence: None)
  Receive Date: 20090325
  Receipt Date: 20090308
  Transmission Date: 20090719
  Serious: Yes (Life-Threatening)
  Sender: FDA-Public Use
  Company Number: 2006S1007392

PATIENT
  Age: 63 Year
  Sex: Female
  Weight: 77.5651 kg

DRUGS (11)
  1. PHOSPHOSODA  FLAVOR NOT SPECIFIED [Suspect]
     Indication: COLONOSCOPY
     Dosage: 45 ML; X1; PO
     Route: 048
     Dates: start: 20030902, end: 20030902
  2. ZESTRIL [Concomitant]
  3. LIPITOR [Concomitant]
  4. SOMA [Concomitant]
  5. CELEBREX [Concomitant]
  6. PROZAC  /00724401/ [Concomitant]
  7. VALIUM [Concomitant]
  8. OMEPRAZOLE [Concomitant]
  9. PRILOSEC [Concomitant]
  10. WELLBUTRIN [Concomitant]
  11. TRANXENE [Concomitant]

REACTIONS (12)
  - ABDOMINAL DISCOMFORT [None]
  - AZOTAEMIA [None]
  - DEHYDRATION [None]
  - DIARRHOEA [None]
  - HYPOPERFUSION [None]
  - HYPOTENSION [None]
  - NAUSEA [None]
  - PAIN [None]
  - RENAL FAILURE ACUTE [None]
  - RENAL FAILURE CHRONIC [None]
  - TACHYCARDIA [None]
  - VOMITING [None]
